FAERS Safety Report 25421313 (Version 2)
Quarter: 2025Q2

REPORT INFORMATION
  Report Type: Spontaneous
  Country: RS (occurrence: RS)
  Receive Date: 20250611
  Receipt Date: 20250626
  Transmission Date: 20250717
  Serious: Yes (Other)
  Sender: NOVARTIS
  Company Number: RS-002147023-NVSC2025RS091351

PATIENT
  Age: 41 Year
  Sex: Female

DRUGS (2)
  1. KESIMPTA [Suspect]
     Active Substance: OFATUMUMAB
     Indication: Multiple sclerosis
     Route: 058
     Dates: start: 20241017
  2. KESIMPTA [Suspect]
     Active Substance: OFATUMUMAB
     Route: 065
     Dates: start: 202411, end: 202504

REACTIONS (1)
  - Breast cancer [Not Recovered/Not Resolved]
